FAERS Safety Report 10559541 (Version 1)
Quarter: 2014Q4

REPORT INFORMATION
  Report Type: Spontaneous
  Country: FR (occurrence: None)
  Receive Date: 20141030
  Receipt Date: 20141030
  Transmission Date: 20150529
  Serious: No
  Sender: FDA-Public Use
  Company Number: FRA-CLT-2004032

PATIENT
  Sex: Female

DRUGS (1)
  1. CYSTADANE [Suspect]
     Active Substance: BETAINE
     Indication: HOMOCYSTINURIA
     Dosage: EVERY DAY
     Route: 048

REACTIONS (5)
  - Inappropriate schedule of drug administration [None]
  - Disease progression [None]
  - Phlebitis [None]
  - Lens dislocation [None]
  - Homocystinuria [None]
